FAERS Safety Report 4334020-2 (Version None)
Quarter: 2004Q2

REPORT INFORMATION
  Report Type: 
  Country: None (occurrence: None)
  Receive Date: 20040402
  Receipt Date: 20040323
  Transmission Date: 20050107
  Serious: Yes (Life-Threatening, Hospitalization)
  Sender: FDA-Public Use
  Company Number: 2004-BP-02331RO

PATIENT
  Age: 2 Year
  Sex: Male
  Weight: 11.36 kg

DRUGS (4)
  1. NAPROXEN [Suspect]
     Indication: ARTHRALGIA
     Dosage: 125 MG QAM, 187.5 MG QPM (SEE TEXT), PO
     Route: 048
     Dates: start: 20021101, end: 20030728
  2. ZYRTEC [Concomitant]
  3. MULTIVITAMIN [Concomitant]
  4. SINGULAIR [Concomitant]

REACTIONS (4)
  - CARDIAC ARREST [None]
  - DUODENAL ULCER PERFORATION [None]
  - LETHARGY [None]
  - PYREXIA [None]
